FAERS Safety Report 20793463 (Version 3)
Quarter: 2023Q1

REPORT INFORMATION
  Report Type: Report from Study
  Country: BR (occurrence: BR)
  Receive Date: 20220506
  Receipt Date: 20230326
  Transmission Date: 20230417
  Serious: Yes (Other)
  Sender: FDA-Public Use
  Company Number: BR-JNJFOC-20220455976

PATIENT
  Age: 6 Decade
  Sex: Female

DRUGS (3)
  1. SIMPONI [Suspect]
     Active Substance: GOLIMUMAB
     Indication: Rheumatoid arthritis
     Route: 058
     Dates: start: 20171201
  2. SIMPONI [Suspect]
     Active Substance: GOLIMUMAB
  3. METHOTREXATE [Concomitant]
     Active Substance: METHOTREXATE

REACTIONS (7)
  - Erysipelas [Unknown]
  - Rheumatoid arthritis [Not Recovered/Not Resolved]
  - Osteoarthritis [Unknown]
  - Therapeutic response decreased [Unknown]
  - Product dose omission issue [Unknown]
  - Injury associated with device [Unknown]
  - Injection site pain [Unknown]

NARRATIVE: CASE EVENT DATE: 20210802
